FAERS Safety Report 6800720-5 (Version None)
Quarter: 2010Q2

REPORT INFORMATION
  Report Type: 
  Country: None (occurrence: None)
  Receive Date: 20100623
  Receipt Date: 20100618
  Transmission Date: 20101027
  Serious: Yes (Other)
  Sender: FDA-Public Use
  Company Number: 2010SP026705

PATIENT
  Sex: Female
  Weight: 3.28 kg

DRUGS (1)
  1. FOLLISTIM [Suspect]
     Indication: IN VITRO FERTILISATION

REACTIONS (3)
  - MATERNAL DRUGS AFFECTING FOETUS [None]
  - PNEUMOMEDIASTINUM [None]
  - RESPIRATORY DISORDER NEONATAL [None]
